FAERS Safety Report 17983519 (Version 3)
Quarter: 2021Q2

REPORT INFORMATION
  Report Type: Spontaneous
  Country: GR (occurrence: GR)
  Receive Date: 20200706
  Receipt Date: 20210628
  Transmission Date: 20210717
  Serious: Yes (Death)
  Sender: FDA-Public Use
  Company Number: GR-TEVA-2020-GR-1794065

PATIENT
  Age: 64 Year

DRUGS (1)
  1. ETOPOSIDE. [Suspect]
     Active Substance: ETOPOSIDE
     Indication: SMALL CELL LUNG CANCER METASTATIC
     Route: 065

REACTIONS (1)
  - Therapy non-responder [Fatal]
